FAERS Safety Report 6646327-4 (Version None)
Quarter: 2010Q1

REPORT INFORMATION
  Report Type: 
  Country: None (occurrence: None)
  Receive Date: 20100323
  Receipt Date: 20100311
  Transmission Date: 20100710
  Serious: Yes (Death, Life-Threatening)
  Sender: FDA-Public Use
  Company Number: JP-BAYER-201010475BYL

PATIENT
  Age: 63 Year
  Sex: Male

DRUGS (7)
  1. NEXAVAR [Suspect]
     Indication: HEPATIC NEOPLASM MALIGNANT
     Dosage: TOTAL DAILY DOSE: 800 MG  UNIT DOSE: 200 MG
     Route: 048
     Dates: start: 20100116, end: 20100217
  2. MORPHINE HYDROCHLORIDE [Concomitant]
     Indication: CANCER PAIN
     Dosage: UNIT DOSE: 50 MG
     Route: 042
     Dates: start: 20100117
  3. URSO 250 [Concomitant]
     Indication: HEPATITIS C
     Dosage: UNIT DOSE: 100 MG
     Route: 048
     Dates: start: 20050401
  4. AMLODIN OD [Concomitant]
     Indication: HYPERTENSION
     Dosage: UNIT DOSE: 5 MG
     Route: 048
     Dates: start: 20050401
  5. NU-LOTAN [Concomitant]
     Indication: HYPERTENSION
     Dosage: UNIT DOSE: 50 MG
     Route: 048
     Dates: start: 20050401
  6. LANSOPRAZOLE [Concomitant]
     Indication: REFLUX OESOPHAGITIS
     Dosage: UNIT DOSE: 15 MG
     Route: 048
     Dates: start: 20050401
  7. MYSLEE [Concomitant]
     Indication: INSOMNIA
     Dosage: UNIT DOSE: 5 MG
     Route: 048
     Dates: start: 20050401

REACTIONS (3)
  - DECREASED APPETITE [None]
  - HEPATIC NEOPLASM MALIGNANT [None]
  - PLATELET COUNT DECREASED [None]
